FAERS Safety Report 14170192 (Version 2)
Quarter: 2017Q4

REPORT INFORMATION
  Report Type: Report from Study
  Country: US (occurrence: US)
  Receive Date: 20171108
  Receipt Date: 20171130
  Transmission Date: 20180321
  Serious: Yes (Other)
  Sender: FDA-Public Use
  Company Number: US-GILEAD-2017-0302591

PATIENT
  Sex: Female

DRUGS (1)
  1. LEDIPASVIR/SOFOSBUVIR [Suspect]
     Active Substance: LEDIPASVIR\SOFOSBUVIR
     Indication: HEPATITIS C
     Route: 064

REACTIONS (4)
  - Shoulder dystocia [Unknown]
  - Continuous positive airway pressure [Recovered/Resolved]
  - Brachial plexus injury [Unknown]
  - Foetal exposure during pregnancy [Unknown]
